FAERS Safety Report 6135477-7 (Version None)
Quarter: 2009Q1

REPORT INFORMATION
  Report Type: 
  Country: None (occurrence: None)
  Receive Date: 20090327
  Receipt Date: 20090320
  Transmission Date: 20090719
  Serious: Yes (Other)
  Sender: FDA-Public Use
  Company Number: A0774346A

PATIENT
  Sex: Male

DRUGS (9)
  1. ADVAIR HFA [Suspect]
     Indication: CHRONIC OBSTRUCTIVE PULMONARY DISEASE
     Dosage: 1PUFF TWICE PER DAY
     Route: 055
     Dates: start: 20090101
  2. ADVAIR HFA [Suspect]
     Dosage: 1PUFF TWICE PER DAY
     Route: 055
     Dates: start: 20090301, end: 20090301
  3. FLOVENT [Suspect]
     Indication: COUGH
     Route: 055
     Dates: start: 20070101, end: 20070101
  4. PROAIR HFA [Concomitant]
  5. AVAPRO [Concomitant]
  6. SIMVASTATIN [Concomitant]
  7. NORVASC [Concomitant]
  8. OMEPRAZOLE [Concomitant]
  9. LOVAZA [Concomitant]

REACTIONS (2)
  - APHASIA [None]
  - DYSPHONIA [None]
